FAERS Safety Report 23073997 (Version 3)
Quarter: 2023Q4

REPORT INFORMATION
  Report Type: Spontaneous
  Country: US (occurrence: US)
  Receive Date: 20231017
  Receipt Date: 20231208
  Transmission Date: 20240110
  Serious: No
  Sender: FDA-Public Use
  Company Number: US-PFIZER INC-PV202300162573

PATIENT
  Age: 5 Year
  Sex: Male

DRUGS (2)
  1. GENOTROPIN [Suspect]
     Active Substance: SOMATROPIN
     Indication: Silver-Russell syndrome
     Dosage: 0.7 MG, DAILY
  2. GENOTROPIN [Suspect]
     Active Substance: SOMATROPIN
     Dosage: ONCE A NIGHT, SUBCUTANEOUS SHOT
     Route: 058
     Dates: start: 202304, end: 20230922

REACTIONS (6)
  - Device use issue [Unknown]
  - Device breakage [Unknown]
  - Drug dose omission by device [Unknown]
  - Device mechanical issue [Unknown]
  - Poor quality device used [Unknown]
  - Off label use [Unknown]

NARRATIVE: CASE EVENT DATE: 20230101
